FAERS Safety Report 6737803-4 (Version None)
Quarter: 2010Q2

REPORT INFORMATION
  Report Type: 
  Country: None (occurrence: None)
  Receive Date: 20100524
  Receipt Date: 20090708
  Transmission Date: 20101027
  Serious: Yes (Death)
  Sender: FDA-Public Use
  Company Number: US-BAYER-200920104NA

PATIENT
  Age: 15 Year
  Sex: Male
  Weight: 35 kg

DRUGS (14)
  1. MAGNEVIST [Suspect]
     Indication: ANGIOGRAM
     Route: 042
     Dates: start: 20050507, end: 20050507
  2. MAGNEVIST [Suspect]
     Dates: start: 20030710, end: 20030710
  3. MAGNEVIST [Suspect]
     Dates: start: 20050702, end: 20050702
  4. LANSOPRAZOLE [Concomitant]
  5. ASPIRIN [Concomitant]
  6. COUMADIN [Concomitant]
     Dosage: TOTAL DAILY DOSE: 4 MG
     Route: 048
  7. MEGESTROL ACETATE [Concomitant]
  8. MEGACE [Concomitant]
     Dosage: TOTAL DAILY DOSE: 400 MG
  9. RENAL VITAMINS [Concomitant]
  10. FOSRENOL [Concomitant]
     Dosage: TOTAL DAILY DOSE: 1500 MG
  11. DESMOPRESSIN ACETATE [Concomitant]
  12. EPOGEN [Concomitant]
  13. PROTAMINE SULFATE [Concomitant]
     Dates: start: 20050711
  14. TRAMADOL HCL [Concomitant]
     Dates: start: 20050708

REACTIONS (23)
  - APHAGIA [None]
  - APHASIA [None]
  - ARTERIOSCLEROSIS [None]
  - BURNING SENSATION [None]
  - DEFORMITY [None]
  - EXTREMITY CONTRACTURE [None]
  - EYE PAIN [None]
  - FAECAL INCONTINENCE [None]
  - GAIT DISTURBANCE [None]
  - HYPOAESTHESIA [None]
  - JOINT CONTRACTURE [None]
  - JOINT LOCK [None]
  - JOINT RANGE OF MOTION DECREASED [None]
  - MOBILITY DECREASED [None]
  - NEPHROGENIC SYSTEMIC FIBROSIS [None]
  - OEDEMA PERIPHERAL [None]
  - PAIN [None]
  - SCLERAL HYPERAEMIA [None]
  - SKIN DISORDER [None]
  - SKIN EXFOLIATION [None]
  - SKIN INDURATION [None]
  - SKIN NODULE [None]
  - TRISMUS [None]
